FAERS Safety Report 4778104-3 (Version None)
Quarter: 2005Q3

REPORT INFORMATION
  Report Type: 
  Country: None (occurrence: None)
  Receive Date: 20050926
  Receipt Date: 20050914
  Transmission Date: 20060218
  Serious: Yes (Death)
  Sender: FDA-Public Use
  Company Number: US-JNJFOC-20041204878

PATIENT
  Sex: Female

DRUGS (17)
  1. INFIXIMAB [Suspect]
     Indication: RHEUMATOID ARTHRITIS
     Route: 042
  2. ZANTAC [Concomitant]
  3. PROZAC [Concomitant]
  4. MULTI-VITAMIN [Concomitant]
  5. MULTI-VITAMIN [Concomitant]
  6. MULTI-VITAMIN [Concomitant]
  7. MULTI-VITAMIN [Concomitant]
  8. MULTI-VITAMIN [Concomitant]
  9. MULTI-VITAMIN [Concomitant]
  10. MULTI-VITAMIN [Concomitant]
  11. MULTI-VITAMIN [Concomitant]
  12. ATENOLOL [Concomitant]
  13. AMITRIPTYLINE HCL [Concomitant]
  14. FOLIC ACID [Concomitant]
  15. HYDROCODONE BITARTRATE + ACETAMINOPHEN [Concomitant]
  16. HYDROCODONE BITARTRATE + ACETAMINOPHEN [Concomitant]
     Dosage: 5/500 6 TABS.
  17. METHOTREXATE [Concomitant]

REACTIONS (2)
  - LUNG NEOPLASM MALIGNANT [None]
  - PULMONARY OEDEMA [None]
